FAERS Safety Report 6905357-5 (Version None)
Quarter: 2010Q3

REPORT INFORMATION
  Report Type: 
  Country: None (occurrence: None)
  Receive Date: 20100708
  Receipt Date: 20090407
  Transmission Date: 20110219
  Serious: Yes (Other)
  Sender: FDA-Public Use
  Company Number: 2009174113

PATIENT
  Age: 47 Year
  Sex: Male
  Weight: 101.2 kg

DRUGS (2)
  1. CHANTIX [Suspect]
     Indication: TOBACCO USER
     Dosage: 1 MG, 2X/DAY, ORAL
     Route: 048
     Dates: start: 20081001, end: 20081201
  2. SIMVASTATIN [Concomitant]

REACTIONS (3)
  - AGGRESSION [None]
  - AMNESIA [None]
  - PERSONALITY DISORDER [None]
